FAERS Safety Report 4951013-2 (Version None)
Quarter: 2006Q1

REPORT INFORMATION
  Report Type: 
  Country: None (occurrence: None)
  Receive Date: 20060316
  Receipt Date: 20060307
  Transmission Date: 20060701
  Serious: Yes (Other)
  Sender: FDA-Public Use
  Company Number: 144853USA

PATIENT
  Age: 29 Year
  Sex: Female

DRUGS (7)
  1. GLATIRAMER ACETATE [Suspect]
     Indication: MULTIPLE SCLEROSIS
     Dosage: 20 MILLIGRAM; SUBCUTANEOUS
     Route: 058
     Dates: start: 20011210, end: 20060224
  2. OXAZEPAM [Concomitant]
  3. CELEXA [Concomitant]
  4. BIRTH CONTROL [Concomitant]
  5. AMFEBUTAMONE HYDROCHLORIDE [Concomitant]
  6. KEPPRA [Concomitant]
  7. GLUCOSAMINE [Concomitant]

REACTIONS (5)
  - INJECTED LIMB MOBILITY DECREASED [None]
  - INJECTION SITE NECROSIS [None]
  - INJECTION SITE SCAR [None]
  - LIPOATROPHY [None]
  - SKIN DISCOLOURATION [None]
